FAERS Safety Report 21180415 (Version 1)
Quarter: 2022Q3

REPORT INFORMATION
  Report Type: Spontaneous
  Country: FR (occurrence: FR)
  Receive Date: 20220806
  Receipt Date: 20220806
  Transmission Date: 20221026
  Serious: Yes (Hospitalization)
  Sender: FDA-Public Use
  Company Number: None

PATIENT
  Age: 59 Year
  Sex: Female
  Weight: 60 kg

DRUGS (2)
  1. PACLITAXEL [Suspect]
     Active Substance: PACLITAXEL
     Indication: HER2 positive breast cancer
     Dates: start: 20220427, end: 20220523
  2. HERCEPTIN [Concomitant]
     Active Substance: TRASTUZUMAB
     Indication: HER2 positive breast cancer
     Dates: start: 20220427

REACTIONS (1)
  - Arteriospasm coronary [Recovering/Resolving]

NARRATIVE: CASE EVENT DATE: 20220531
